FAERS Safety Report 19582297 (Version 1)
Quarter: 2021Q3

REPORT INFORMATION
  Report Type: Other
  Country: US (occurrence: US)
  Receive Date: 20210720
  Receipt Date: 20210720
  Transmission Date: 20211014
  Serious: Yes (Other)
  Sender: FDA-Public Use
  Company Number: US-ROCHE-2868706

PATIENT
  Sex: Female

DRUGS (26)
  1. XELODA [Suspect]
     Active Substance: CAPECITABINE
     Indication: COLORECTAL CANCER METASTATIC
     Dosage: TAKE 4 TABLET(S) BY MOUTH TWICE A DAY FOR 2 WEEK(S
     Route: 048
  2. CLEOCIN T [Concomitant]
     Active Substance: CLINDAMYCIN PHOSPHATE
  3. DIPHENOXYLATE/ATROPINE [Concomitant]
     Active Substance: ATROPINE\DIPHENOXYLATE
  4. ZYPREXA [Concomitant]
     Active Substance: OLANZAPINE
  5. AVASTIN [Suspect]
     Active Substance: BEVACIZUMAB
     Indication: PRODUCT USED FOR UNKNOWN INDICATION
     Route: 065
     Dates: start: 201909, end: 201912
  6. MARINOL [Concomitant]
     Active Substance: DRONABINOL
  7. MYCELEX TROCHE [Concomitant]
  8. OMEPRAZOLE. [Concomitant]
     Active Substance: OMEPRAZOLE
  9. XELODA [Suspect]
     Active Substance: CAPECITABINE
     Indication: COLON CANCER
  10. MVASI [Suspect]
     Active Substance: BEVACIZUMAB-AWWB
     Indication: PRODUCT USED FOR UNKNOWN INDICATION
     Route: 065
  11. NYSTATIN. [Concomitant]
     Active Substance: NYSTATIN
  12. CYMBALTA [Concomitant]
     Active Substance: DULOXETINE HYDROCHLORIDE
  13. BENADRYL [Concomitant]
     Active Substance: DIPHENHYDRAMINE HYDROCHLORIDE
  14. LIDOCAINE VISCOUS [Concomitant]
     Active Substance: LIDOCAINE HYDROCHLORIDE
  15. COLESEVELAM [Concomitant]
     Active Substance: COLESEVELAM
  16. LIDOCAINE;PRILOCAINE [Concomitant]
  17. TURMERIC [Concomitant]
     Active Substance: HERBALS\TURMERIC
  18. VITAMIN B6 [Concomitant]
     Active Substance: PYRIDOXINE HYDROCHLORIDE
  19. IRINOTECAN [Concomitant]
     Active Substance: IRINOTECAN
  20. DOXYCYCLINE MONOHYDRATE [Concomitant]
     Active Substance: DOXYCYCLINE
  21. PROMETHAZINE [Concomitant]
     Active Substance: PROMETHAZINE HYDROCHLORIDE
  22. VITAMIN D3 [Concomitant]
     Active Substance: CHOLECALCIFEROL
  23. PYRIDIUM [Concomitant]
     Active Substance: PHENAZOPYRIDINE
  24. ALPHA LIPOIC ACID [Concomitant]
     Active Substance: .ALPHA.-LIPOIC ACID
     Route: 048
  25. HYDROCODONE/ACETAMINOPHEN [Concomitant]
     Active Substance: ACETAMINOPHEN\HYDROCODONE
  26. KLONOPIN [Concomitant]
     Active Substance: CLONAZEPAM
     Route: 048

REACTIONS (1)
  - Peptic ulcer [Unknown]
